FAERS Safety Report 5006857-8 (Version None)
Quarter: 2006Q2

REPORT INFORMATION
  Report Type: 
  Country: None (occurrence: None)
  Receive Date: 20060516
  Receipt Date: 20060430
  Transmission Date: 20061013
  Serious: Yes (Other)
  Sender: FDA-Public Use
  Company Number: US200604004222

PATIENT
  Age: 62 Year
  Sex: Male
  Weight: 101.9 kg

DRUGS (5)
  1. SOMATROPIN(SOMATROPIN) VIAL [Suspect]
     Indication: GROWTH HORMONE DEFICIENCY
     Dosage: 0.4 MG, DAILY (1/D), SUBCUTANEOUS
     Route: 058
     Dates: start: 20050228
  2. ANDROGEL [Concomitant]
  3. LEVOXYL [Concomitant]
  4. HYDROCORTISONE [Concomitant]
  5. VIAGRA [Concomitant]

REACTIONS (1)
  - PROSTATE CANCER [None]
